FAERS Safety Report 6288934-7 (Version None)
Quarter: 2009Q3

REPORT INFORMATION
  Report Type: 
  Country: None (occurrence: None)
  Receive Date: 20090729
  Receipt Date: 20090717
  Transmission Date: 20100115
  Serious: Yes (Other)
  Sender: FDA-Public Use
  Company Number: AU-PFIZER INC-2009242339

PATIENT
  Age: 53 Year

DRUGS (2)
  1. CHAMPIX [Suspect]
  2. VITAMINS [Concomitant]

REACTIONS (4)
  - AGGRESSION [None]
  - DEPRESSION [None]
  - INTENTIONAL SELF-INJURY [None]
  - MOOD SWINGS [None]
